FAERS Safety Report 12634395 (Version 3)
Quarter: 2016Q4

REPORT INFORMATION
  Report Type: Spontaneous
  Country: US (occurrence: US)
  Receive Date: 20160808
  Receipt Date: 20161108
  Transmission Date: 20170207
  Serious: Yes (Hospitalization, Other)
  Sender: FDA-Public Use
  Company Number: US-GLAXOSMITHKLINE-US2016113698

PATIENT
  Sex: Male

DRUGS (10)
  1. PREDNISONE. [Concomitant]
     Active Substance: PREDNISONE
  2. VENTOLIN [Concomitant]
     Active Substance: ALBUTEROL SULFATE
  3. BENZONATATE. [Concomitant]
     Active Substance: BENZONATATE
  4. FAMOTIDINE. [Concomitant]
     Active Substance: FAMOTIDINE
  5. ADVAIR DISKUS [Suspect]
     Active Substance: FLUTICASONE PROPIONATE\SALMETEROL XINAFOATE
     Indication: EMPHYSEMA
     Dosage: 1 PUFF(S), BID
     Route: 055
     Dates: start: 2009
  6. ADVAIR DISKUS [Suspect]
     Active Substance: FLUTICASONE PROPIONATE\SALMETEROL XINAFOATE
     Dosage: 1 PUFF(S), BID
     Route: 055
     Dates: start: 2009
  7. BREO ELLIPTA [Suspect]
     Active Substance: FLUTICASONE FUROATE\VILANTEROL TRIFENATATE
     Indication: EMPHYSEMA
     Dosage: 1 PUFF(S), QD
     Route: 055
     Dates: start: 201603, end: 201606
  8. ADVAIR DISKUS [Suspect]
     Active Substance: FLUTICASONE PROPIONATE\SALMETEROL XINAFOATE
     Dosage: UNK
  9. ALBUTEROL/IPRATROPIUM NEBULIZER [Concomitant]
     Active Substance: ALBUTEROL SULFATE\IPRATROPIUM BROMIDE
  10. DILTIAZEM. [Concomitant]
     Active Substance: DILTIAZEM

REACTIONS (10)
  - Lung carcinoma cell type unspecified stage IV [Not Recovered/Not Resolved]
  - Lung neoplasm malignant [Not Recovered/Not Resolved]
  - Pneumonia [Recovered/Resolved]
  - Apparent death [Unknown]
  - Lung operation [Unknown]
  - Dyspnoea [Not Recovered/Not Resolved]
  - Heart rate increased [Recovered/Resolved]
  - Pericardial effusion [Not Recovered/Not Resolved]
  - Drug ineffective [Recovered/Resolved]
  - Oesophageal carcinoma [Not Recovered/Not Resolved]

NARRATIVE: CASE EVENT DATE: 2011
